FAERS Safety Report 21410810 (Version 2)
Quarter: 2022Q4

REPORT INFORMATION
  Report Type: Spontaneous
  Country: AU (occurrence: AU)
  Receive Date: 20221005
  Receipt Date: 20221018
  Transmission Date: 20230112
  Serious: Yes (Other)
  Sender: FDA-Public Use
  Company Number: AU-NOVARTISPH-NVSC2022AU224520

PATIENT
  Age: 81 Year
  Sex: Female

DRUGS (1)
  1. KISQALI [Suspect]
     Active Substance: RIBOCICLIB
     Indication: Neoplasm
     Dosage: 3 DOSAGE FORM, QD, (THREE 200MG TABLETS IN THE MORNING)
     Route: 065

REACTIONS (9)
  - Neoplasm malignant [Unknown]
  - Diarrhoea [Unknown]
  - Nausea [Unknown]
  - Illness [Unknown]
  - Hypertension [Unknown]
  - Malaise [Unknown]
  - Feeling abnormal [Unknown]
  - Product dose omission in error [Unknown]
  - Product use in unapproved indication [Unknown]

NARRATIVE: CASE EVENT DATE: 20220929
